FAERS Safety Report 19045946 (Version 1)
Quarter: 2021Q1

REPORT INFORMATION
  Report Type: Spontaneous
  Country: CA (occurrence: CA)
  Receive Date: 20210323
  Receipt Date: 20210323
  Transmission Date: 20210420
  Serious: Yes (Other)
  Sender: FDA-Public Use
  Company Number: CA-PURDUE-USA-2021-0235841

PATIENT
  Age: 19 Year
  Sex: Female

DRUGS (7)
  1. PREGABALIN. [Suspect]
     Active Substance: PREGABALIN
     Indication: COMPLEX REGIONAL PAIN SYNDROME
     Dosage: 300 MG, UNK
     Route: 065
  2. KETAMINE HYDROCHLORIDE. [Concomitant]
     Active Substance: KETAMINE HYDROCHLORIDE
     Dosage: UNK
     Route: 030
  3. AMITRIPTYLINE [Suspect]
     Active Substance: AMITRIPTYLINE
     Indication: PRODUCT USED FOR UNKNOWN INDICATION
     Dosage: 150 MG, DAILY
     Route: 065
  4. FENTANYL. [Suspect]
     Active Substance: FENTANYL
     Indication: PROCEDURAL PAIN
     Dosage: 25 MG, UNK
     Route: 062
  5. OXYCODONE HYDROCHLORIDE. [Suspect]
     Active Substance: OXYCODONE HYDROCHLORIDE
     Indication: PROCEDURAL PAIN
  6. FENTANYL. [Suspect]
     Active Substance: FENTANYL
     Indication: COMPLEX REGIONAL PAIN SYNDROME
     Dosage: 100 MG, UNK
     Route: 062
  7. OXYCODONE HYDROCHLORIDE. [Suspect]
     Active Substance: OXYCODONE HYDROCHLORIDE
     Indication: COMPLEX REGIONAL PAIN SYNDROME
     Dosage: UNK
     Route: 065

REACTIONS (4)
  - Weight increased [Unknown]
  - Product use in unapproved indication [Unknown]
  - Off label use [Unknown]
  - Drug withdrawal syndrome [Unknown]
